FAERS Safety Report 13639403 (Version 2)
Quarter: 2017Q3

REPORT INFORMATION
  Report Type: Report from Study
  Country: AU (occurrence: AU)
  Receive Date: 20170609
  Receipt Date: 20170823
  Transmission Date: 20171127
  Serious: Yes (Other)
  Sender: FDA-Public Use
  Company Number: AU-BRISTOL-MYERS SQUIBB COMPANY-BMS-2017-049519

PATIENT
  Sex: Female
  Weight: 100 kg

DRUGS (1)
  1. ARIPIPRAZOLE. [Suspect]
     Active Substance: ARIPIPRAZOLE
     Indication: SCHIZOPHRENIA
     Dosage: 30 MG, UNK
     Route: 065
     Dates: start: 20170501, end: 20170531

REACTIONS (4)
  - Psychotic disorder [Recovered/Resolved]
  - Substance abuse [Unknown]
  - Treatment noncompliance [Unknown]
  - Prescribed overdose [Unknown]
